FAERS Safety Report 14331794 (Version 4)
Quarter: 2018Q1

REPORT INFORMATION
  Report Type: Report from Study
  Country: BR (occurrence: BR)
  Receive Date: 20171228
  Receipt Date: 20180129
  Transmission Date: 20180509
  Serious: Yes (Hospitalization, Other)
  Sender: FDA-Public Use
  Company Number: PHHY2017BR186801

PATIENT
  Age: 40 Year
  Sex: Female
  Weight: 104 kg

DRUGS (11)
  1. COSENTYX [Suspect]
     Active Substance: SECUKINUMAB
     Indication: ANKYLOSING SPONDYLITIS
     Dosage: 150 MG, QMO
     Route: 058
     Dates: start: 201707
  2. ATENOLOL. [Concomitant]
     Active Substance: ATENOLOL
     Indication: HYPERTENSION
     Dosage: 50 MG, QD, 1 YEAR
     Route: 048
  3. PREGABALIN. [Concomitant]
     Active Substance: PREGABALIN
     Indication: SPONDYLITIS
     Dosage: 300 MG, BID, 2YEARS AGO
     Route: 048
  4. ETNA [Concomitant]
     Active Substance: UNSPECIFIED INGREDIENT
     Indication: ANKYLOSING SPONDYLITIS
     Dosage: UNK UNK, TID, ONE MONTH
     Route: 048
  5. TIZANIDINE. [Concomitant]
     Active Substance: TIZANIDINE
     Indication: PAIN
     Dosage: 2 MG, QD
     Route: 048
     Dates: start: 201711
  6. COSENTYX [Suspect]
     Active Substance: SECUKINUMAB
     Dosage: 150 MG, QMO STARTED SIX MONTHS AGO
     Route: 058
  7. ETNA [Concomitant]
     Active Substance: UNSPECIFIED INGREDIENT
     Indication: PAIN
  8. PROLIVE [Concomitant]
     Indication: CONSTIPATION
     Dosage: 1 DF, BID
     Route: 048
     Dates: start: 201711
  9. PREGABALIN. [Concomitant]
     Active Substance: PREGABALIN
     Indication: FIBROMYALGIA
  10. NEOZINE [Concomitant]
     Active Substance: LEVOMEPROMAZINE
     Indication: INSOMNIA
     Dosage: 25 MG, QD, 1 MONTH AGO
     Route: 048
  11. ARCOXIA [Concomitant]
     Active Substance: ETORICOXIB
     Indication: ANKYLOSING SPONDYLITIS
     Dosage: 90 MG, QD, SIX MONTHS
     Route: 048

REACTIONS (12)
  - Calculus urinary [Recovering/Resolving]
  - Arthralgia [Not Recovered/Not Resolved]
  - Memory impairment [Not Recovered/Not Resolved]
  - Drug ineffective [Unknown]
  - Spinal pain [Not Recovered/Not Resolved]
  - Pain [Not Recovered/Not Resolved]
  - Swelling [Not Recovered/Not Resolved]
  - Urinary tract infection bacterial [Recovering/Resolving]
  - Urinary tract infection bacterial [Recovered/Resolved]
  - Depression [Not Recovered/Not Resolved]
  - Haematuria [Recovering/Resolving]
  - Dysuria [Unknown]

NARRATIVE: CASE EVENT DATE: 201706
